FAERS Safety Report 7024198-4 (Version None)
Quarter: 2010Q4

REPORT INFORMATION
  Report Type: 
  Country: None (occurrence: None)
  Receive Date: 20101001
  Receipt Date: 20100921
  Transmission Date: 20110411
  Serious: Yes (Death, Other)
  Sender: FDA-Public Use
  Company Number: BR-ROCHE-728861

PATIENT
  Sex: Female

DRUGS (1)
  1. DIAZEPAM [Suspect]
     Route: 065

REACTIONS (3)
  - DRUG INTERACTION [None]
  - DRUG PRESCRIBING ERROR [None]
  - HYPOGLYCAEMIA [None]
